FAERS Safety Report 20065292 (Version 2)
Quarter: 2021Q4

REPORT INFORMATION
  Report Type: Spontaneous
  Country: GB (occurrence: GB)
  Receive Date: 20211113
  Receipt Date: 20211119
  Transmission Date: 20220303
  Serious: Yes (Hospitalization, Other)
  Sender: FDA-Public Use
  Company Number: GB-ABBVIE-21K-167-4156962-00

PATIENT
  Sex: Male

DRUGS (3)
  1. CARBIDOPA\LEVODOPA [Suspect]
     Active Substance: CARBIDOPA\LEVODOPA
     Indication: Product used for unknown indication
     Dosage: DOSAGE DECREASED
     Route: 050
  2. CARBIDOPA\LEVODOPA [Suspect]
     Active Substance: CARBIDOPA\LEVODOPA
     Route: 050
  3. BENSERAZIDE HYDROCHLORIDE\LEVODOPA [Concomitant]
     Active Substance: BENSERAZIDE HYDROCHLORIDE\LEVODOPA
     Indication: Product used for unknown indication
     Dosage: 12.5/50MG?TWO TABLETS 4 TO 6 TIMES A DAY

REACTIONS (10)
  - Brain operation [Unknown]
  - Hospitalisation [Unknown]
  - Delirium [Unknown]
  - Abnormal behaviour [Unknown]
  - Unintentional medical device removal [Unknown]
  - Device leakage [Unknown]
  - Faecaloma [Unknown]
  - Feeling abnormal [Unknown]
  - Mobility decreased [Unknown]
  - Constipation [Unknown]

NARRATIVE: CASE EVENT DATE: 20200101
